FAERS Safety Report 7583457-7 (Version None)
Quarter: 2011Q2

REPORT INFORMATION
  Report Type: 
  Country: None (occurrence: None)
  Receive Date: 20110630
  Receipt Date: 20110628
  Transmission Date: 20111010
  Serious: Yes (Hospitalization)
  Sender: FDA-Public Use
  Company Number: AT-TEVA-288298ISR

PATIENT
  Age: 27 Month
  Sex: Male
  Weight: 14 kg

DRUGS (1)
  1. DOXAZOSIN MESYLATE [Suspect]
     Indication: ACCIDENTAL EXPOSURE
     Dosage: 2 MILLIGRAM;
     Route: 048
     Dates: start: 20110310, end: 20110310

REACTIONS (3)
  - ACCIDENTAL EXPOSURE [None]
  - FATIGUE [None]
  - SINUS TACHYCARDIA [None]
